FAERS Safety Report 5787143-5 (Version None)
Quarter: 2008Q2

REPORT INFORMATION
  Report Type: 
  Country: None (occurrence: None)
  Receive Date: 20080625
  Receipt Date: 20070906
  Transmission Date: 20081010
  Serious: No
  Sender: FDA-Public Use
  Company Number: US-ASTRAZENECA-2007UW21155

PATIENT
  Age: 62 Year
  Sex: Male
  Weight: 95.3 kg

DRUGS (6)
  1. PULMICORT-100 [Suspect]
     Indication: EMPHYSEMA
     Route: 055
  2. ALBUTEROL [Concomitant]
  3. SPIRIVA [Concomitant]
  4. LOTENSIN [Concomitant]
  5. ZOCOR [Concomitant]
  6. GLUCOPHAGE [Concomitant]

REACTIONS (1)
  - INCREASED APPETITE [None]
